FAERS Safety Report 17982692 (Version 1)
Quarter: 2020Q3

REPORT INFORMATION
  Report Type: Spontaneous
  Country: US (occurrence: US)
  Receive Date: 20200703
  Receipt Date: 20200703
  Transmission Date: 20201103
  Serious: No
  Sender: FDA-Public Use
  Company Number: None

PATIENT
  Age: 31 Year
  Sex: Male

DRUGS (4)
  1. CEFUROXIME. [Concomitant]
     Active Substance: CEFUROXIME
  2. FLUTICASONE. [Concomitant]
     Active Substance: FLUTICASONE
  3. HUMIRA [Suspect]
     Active Substance: ADALIMUMAB
     Indication: COLITIS ULCERATIVE
     Dosage: ?          OTHER FREQUENCY:EVERY  2 WEEKS;?
     Route: 030
     Dates: start: 20200324
  4. MESALAMINE. [Concomitant]
     Active Substance: MESALAMINE

REACTIONS (2)
  - Therapy interrupted [None]
  - Diarrhoea [None]

NARRATIVE: CASE EVENT DATE: 20200626
